FAERS Safety Report 11198638 (Version 2)
Quarter: 2016Q2

REPORT INFORMATION
  Report Type: Spontaneous
  Country: US (occurrence: US)
  Receive Date: 20150603
  Receipt Date: 20160603
  Transmission Date: 20160815
  Serious: No
  Sender: FDA-Public Use
  Company Number: US-MDCO-15-00171

PATIENT
  Age: 86 Year
  Sex: Female

DRUGS (2)
  1. ORBACTIV [Suspect]
     Active Substance: ORITAVANCIN
     Indication: STAPHYLOCOCCAL INFECTION
  2. ORBACTIV [Suspect]
     Active Substance: ORITAVANCIN
     Indication: ENDOCARDITIS
     Dates: start: 201501

REACTIONS (2)
  - Drug ineffective for unapproved indication [Unknown]
  - No adverse event [Recovered/Resolved]

NARRATIVE: CASE EVENT DATE: 201501
